FAERS Safety Report 9414702 (Version 1)
Quarter: 2013Q3

REPORT INFORMATION
  Report Type: Spontaneous
  Country: US (occurrence: US)
  Receive Date: 20130723
  Receipt Date: 20130723
  Transmission Date: 20140515
  Serious: Yes (Other)
  Sender: FDA-Public Use
  Company Number: PHHY2013US073346

PATIENT
  Age: 21 Year
  Sex: Male

DRUGS (6)
  1. CARBAMAZEPINE [Suspect]
  2. PAROXETINE [Suspect]
  3. VALPROIC ACID [Suspect]
  4. CLONAZEPAM [Suspect]
  5. SERTRALINE [Suspect]
  6. CLONIDINE [Suspect]

REACTIONS (4)
  - Thrombocytopenia [Unknown]
  - Contusion [Unknown]
  - Gastrointestinal disorder [Unknown]
  - Irritability [Unknown]
